FAERS Safety Report 6681664-9 (Version None)
Quarter: 2010Q2

REPORT INFORMATION
  Report Type: 
  Country: None (occurrence: None)
  Receive Date: 20100414
  Receipt Date: 20100406
  Transmission Date: 20101027
  Serious: Yes (Hospitalization)
  Sender: FDA-Public Use
  Company Number: US-ABBOTT-10P-163-0624657-00

PATIENT
  Sex: Female
  Weight: 72.64 kg

DRUGS (20)
  1. HUMIRA [Suspect]
     Indication: RHEUMATOID ARTHRITIS
     Dates: start: 19990101
  2. HUMIRA [Suspect]
     Dates: start: 20091201, end: 20100101
  3. HUMIRA [Suspect]
     Dates: start: 20100203
  4. MAGNESIUM OXIDE [Concomitant]
     Indication: DRUG USE FOR UNKNOWN INDICATION
     Route: 048
  5. METFORMIN HCL [Concomitant]
     Indication: DIABETES MELLITUS
  6. ACETAMINOPHEN [Concomitant]
     Indication: DRUG USE FOR UNKNOWN INDICATION
  7. JANUMET [Concomitant]
     Indication: DIABETES MELLITUS
     Dosage: 500/500 MG   500/500MG
  8. GLIPIZIDE [Concomitant]
     Indication: DIABETES MELLITUS
  9. NEXIUM [Concomitant]
     Indication: DRUG USE FOR UNKNOWN INDICATION
  10. FOLIC ACID [Concomitant]
     Indication: DRUG USE FOR UNKNOWN INDICATION
  11. DIOVAN [Concomitant]
     Indication: HYPERTENSION
  12. SULFAMETHOXAZOLE [Concomitant]
     Indication: DRUG USE FOR UNKNOWN INDICATION
     Route: 048
  13. LORATADINE [Concomitant]
     Indication: DRUG USE FOR UNKNOWN INDICATION
  14. METOCLOPRAMIDE HYDROCHLORIDE [Concomitant]
     Indication: DRUG USE FOR UNKNOWN INDICATION
  15. RE DUALVIT PLUS [Concomitant]
     Indication: DRUG USE FOR UNKNOWN INDICATION
  16. PREDNISOLONE [Concomitant]
     Indication: DRUG USE FOR UNKNOWN INDICATION
  17. NIACIN [Concomitant]
     Indication: DRUG USE FOR UNKNOWN INDICATION
  18. MULTI-VITAMIN [Concomitant]
     Indication: DRUG USE FOR UNKNOWN INDICATION
  19. ACTOS [Concomitant]
     Indication: DRUG USE FOR UNKNOWN INDICATION
  20. POTASSIUM [Concomitant]
     Indication: DRUG USE FOR UNKNOWN INDICATION

REACTIONS (8)
  - ARTHRALGIA [None]
  - BLOOD MAGNESIUM DECREASED [None]
  - BLOOD POTASSIUM DECREASED [None]
  - BLOOD TEST ABNORMAL [None]
  - DECREASED APPETITE [None]
  - FALL [None]
  - GRIP STRENGTH DECREASED [None]
  - MOVEMENT DISORDER [None]
